FAERS Safety Report 24738810 (Version 2)
Quarter: 2025Q1

REPORT INFORMATION
  Report Type: Spontaneous
  Country: CA (occurrence: CA)
  Receive Date: 20241216
  Receipt Date: 20250202
  Transmission Date: 20250409
  Serious: Yes (Death, Hospitalization, Disabling, Congenital Anomaly)
  Sender: ROCHE
  Company Number: CA-ROCHE-10000152884

PATIENT
  Age: 40 Year
  Sex: Female
  Weight: 96 kg

DRUGS (17)
  1. RITUXIMAB [Suspect]
     Active Substance: RITUXIMAB
     Indication: Rheumatoid arthritis
     Route: 040
  2. RITUXIMAB [Suspect]
     Active Substance: RITUXIMAB
     Indication: Rheumatoid arthritis
     Route: 058
  3. RITUXIMAB [Suspect]
     Active Substance: RITUXIMAB
     Indication: Rheumatoid arthritis
     Route: 065
  4. RITUXIMAB [Suspect]
     Active Substance: RITUXIMAB
     Route: 065
  5. RITUXIMAB [Suspect]
     Active Substance: RITUXIMAB
     Route: 065
  6. RITUXIMAB [Suspect]
     Active Substance: RITUXIMAB
     Route: 016
  7. RITUXIMAB [Suspect]
     Active Substance: RITUXIMAB
     Route: 043
  8. ACTEMRA [Suspect]
     Active Substance: TOCILIZUMAB
     Indication: Rheumatoid arthritis
     Route: 040
  9. ACTEMRA [Suspect]
     Active Substance: TOCILIZUMAB
     Route: 040
  10. ACTEMRA [Suspect]
     Active Substance: TOCILIZUMAB
     Route: 040
  11. ACTEMRA [Suspect]
     Active Substance: TOCILIZUMAB
     Route: 040
  12. ACTEMRA [Suspect]
     Active Substance: TOCILIZUMAB
     Route: 040
  13. ACTEMRA [Suspect]
     Active Substance: TOCILIZUMAB
     Route: 040
  14. ACTEMRA [Suspect]
     Active Substance: TOCILIZUMAB
     Indication: Rheumatoid arthritis
     Route: 058
  15. ACTEMRA [Suspect]
     Active Substance: TOCILIZUMAB
     Route: 058
  16. ACTEMRA [Suspect]
     Active Substance: TOCILIZUMAB
     Route: 058
  17. DESOGESTREL\ETHINYL ESTRADIOL [Concomitant]
     Active Substance: DESOGESTREL\ETHINYL ESTRADIOL
     Indication: Product used for unknown indication
     Route: 065

REACTIONS (38)
  - Abdominal discomfort [Fatal]
  - Abdominal distension [Fatal]
  - Alopecia [Fatal]
  - Anti-cyclic citrullinated peptide antibody positive [Fatal]
  - Arthralgia [Fatal]
  - Arthropathy [Fatal]
  - Blood cholesterol increased [Fatal]
  - Bursitis [Fatal]
  - Coeliac disease [Fatal]
  - Condition aggravated [Fatal]
  - Decreased appetite [Fatal]
  - Drug intolerance [Fatal]
  - Drug-induced liver injury [Fatal]
  - Dyspepsia [Fatal]
  - Maternal exposure during pregnancy [Fatal]
  - Folliculitis [Fatal]
  - Gastrointestinal disorder [Fatal]
  - Gastrooesophageal reflux disease [Fatal]
  - General physical health deterioration [Fatal]
  - Grip strength decreased [Fatal]
  - Hand deformity [Fatal]
  - Headache [Fatal]
  - Hepatic enzyme increased [Fatal]
  - Hypersensitivity [Fatal]
  - Hypertension [Fatal]
  - Hypoaesthesia [Fatal]
  - Inflammation [Fatal]
  - Insomnia [Fatal]
  - Irritable bowel syndrome [Fatal]
  - Joint swelling [Fatal]
  - Malaise [Fatal]
  - Mobility decreased [Fatal]
  - Nail disorder [Fatal]
  - Musculoskeletal stiffness [Fatal]
  - Off label use [Fatal]
  - Product label confusion [Fatal]
  - Fatigue [Fatal]
  - Glossodynia [Fatal]
